FAERS Safety Report 15722533 (Version 1)
Quarter: 2018Q4

REPORT INFORMATION
  Report Type: Spontaneous
  Country: CN (occurrence: CN)
  Receive Date: 20181214
  Receipt Date: 20181214
  Transmission Date: 20190205
  Serious: Yes (Hospitalization, Other)
  Sender: FDA-Public Use
  Company Number: PHHY2018CN179180

PATIENT
  Age: 42 Month
  Sex: Male

DRUGS (1)
  1. DEXAMETHASONE. [Suspect]
     Active Substance: DEXAMETHASONE
     Indication: PRODUCT USED FOR UNKNOWN INDICATION
     Route: 065

REACTIONS (9)
  - Sepsis [Unknown]
  - Abdominal distension [Recovered/Resolved]
  - Urticaria [Recovered/Resolved]
  - Duodenal perforation [Recovered/Resolved]
  - Abdominal pain [Recovered/Resolved]
  - Vomiting [Recovered/Resolved]
  - Peritonitis [Unknown]
  - Hyperpyrexia [Recovered/Resolved]
  - Shock [Unknown]
